FAERS Safety Report 25637256 (Version 2)
Quarter: 2025Q3

REPORT INFORMATION
  Report Type: Report from Study
  Country: US (occurrence: US)
  Receive Date: 20250804
  Receipt Date: 20250904
  Transmission Date: 20251020
  Serious: Yes (Death, Hospitalization, Other)
  Sender: TAKEDA
  Company Number: US-TAKEDA-2025TUS068855

PATIENT
  Sex: Male

DRUGS (15)
  1. FRUQUINTINIB [Suspect]
     Active Substance: FRUQUINTINIB
     Indication: Rectal cancer
  2. ATORVASTATIN [Concomitant]
     Active Substance: ATORVASTATIN
  3. VITAMIN B12 [Concomitant]
     Active Substance: CYANOCOBALAMIN
  4. DOCUSATE SODIUM [Concomitant]
     Active Substance: DOCUSATE SODIUM
  5. FERROUS SULFATE [Concomitant]
     Active Substance: FERROUS SULFATE
  6. ISOSORBIDE MONONITRATE [Concomitant]
     Active Substance: ISOSORBIDE MONONITRATE
  7. LOVASTATIN [Concomitant]
     Active Substance: LOVASTATIN
  8. MAGNESIUM OXIDE [Concomitant]
     Active Substance: MAGNESIUM OXIDE
  9. METFORMIN [Concomitant]
     Active Substance: METFORMIN HYDROCHLORIDE
  10. METOPROLOL TARTRATE [Concomitant]
     Active Substance: METOPROLOL TARTRATE
  11. PERCOCET [Concomitant]
     Active Substance: ACETAMINOPHEN\OXYCODONE HYDROCHLORIDE
  12. PANTOPRAZOLE [Concomitant]
     Active Substance: PANTOPRAZOLE
  13. POTASSIUM CHLORIDE [Concomitant]
     Active Substance: POTASSIUM CHLORIDE
  14. SUCRALFATE [Concomitant]
     Active Substance: SUCRALFATE
  15. TYLENOL [Concomitant]
     Active Substance: ACETAMINOPHEN

REACTIONS (3)
  - Death [Fatal]
  - Fracture [Not Recovered/Not Resolved]
  - Fall [Not Recovered/Not Resolved]
